FAERS Safety Report 9781660 (Version 1)
Quarter: 2013Q4

REPORT INFORMATION
  Report Type: Spontaneous
  Country: IT (occurrence: IT)
  Receive Date: 20131224
  Receipt Date: 20131224
  Transmission Date: 20140711
  Serious: Yes (Hospitalization)
  Sender: FDA-Public Use
  Company Number: IT-ACTAVIS-2013-23143

PATIENT
  Age: 31 Year
  Sex: Female

DRUGS (5)
  1. FLUOXETINE (UNKNOWN) [Suspect]
     Indication: PRODUCT USED FOR UNKNOWN INDICATION
     Dosage: 160 MG, DAILY
     Route: 065
     Dates: start: 20131103, end: 20131128
  2. EPHEDRINE (UNKNOWN) [Suspect]
     Indication: PRODUCT USED FOR UNKNOWN INDICATION
     Dosage: 160 MG, DAILY
     Route: 048
     Dates: start: 20131103, end: 20131128
  3. TOPIRAMATE (UNKNOWN) [Suspect]
     Indication: PRODUCT USED FOR UNKNOWN INDICATION
     Dosage: 80 MG, DAILY
     Route: 065
     Dates: start: 20131103, end: 20131128
  4. CLORAZEPATE DIPOTASSIUM (WATSON LABORATORIES) [Suspect]
     Indication: PRODUCT USED FOR UNKNOWN INDICATION
     Dosage: 80 MG, DAILY
     Route: 065
     Dates: start: 20131103, end: 20131128
  5. BROMELAIN [Suspect]
     Indication: PRODUCT USED FOR UNKNOWN INDICATION
     Dosage: 400 MG, DAILY
     Route: 065
     Dates: start: 20131103, end: 20131128

REACTIONS (5)
  - Syncope [Recovering/Resolving]
  - Apraxia [Recovering/Resolving]
  - Hypokalaemia [Recovering/Resolving]
  - Mydriasis [Recovering/Resolving]
  - Thyroid disorder [Recovering/Resolving]
